FAERS Safety Report 17277384 (Version 4)
Quarter: 2020Q3

REPORT INFORMATION
  Report Type: Other
  Country: KR (occurrence: KR)
  Receive Date: 20200116
  Receipt Date: 20200721
  Transmission Date: 20201105
  Serious: Yes (Other)
  Sender: FDA-Public Use
  Company Number: KR-ROCHE-2483222

PATIENT
  Age: 69 Year
  Sex: Female

DRUGS (4)
  1. ZOLPID [Concomitant]
     Indication: PANIC DISORDER
     Route: 048
     Dates: start: 2019, end: 2019
  2. ALECTINIB. [Suspect]
     Active Substance: ALECTINIB
     Indication: NON-SMALL CELL LUNG CANCER METASTATIC
     Route: 048
     Dates: start: 20190124
  3. CARVEROL [Concomitant]
     Indication: HYPERTENSION
     Route: 048
     Dates: start: 2019, end: 2019
  4. MACHKHAN [Concomitant]
     Indication: HYPERTENSION
     Route: 048
     Dates: start: 2019, end: 2019

REACTIONS (3)
  - Cough [Recovered/Resolved]
  - Leukocytosis [Recovered/Resolved]
  - Chronic kidney disease [Recovered/Resolved]

NARRATIVE: CASE EVENT DATE: 20190705
